FAERS Safety Report 9944806 (Version 1)
Quarter: 2014Q1

REPORT INFORMATION
  Report Type: Spontaneous
  Country: US (occurrence: US)
  Receive Date: 20140303
  Receipt Date: 20140303
  Transmission Date: 20141002
  Serious: No
  Sender: FDA-Public Use
  Company Number: US-ABBVIE-13P-163-1054446-00

PATIENT
  Age: 58 Year
  Sex: Male
  Weight: 99.88 kg

DRUGS (16)
  1. HUMIRA PEN [Suspect]
     Indication: RHEUMATOID ARTHRITIS
     Dates: start: 2009, end: 2012
  2. COREG [Concomitant]
     Indication: HYPERTENSION
  3. PROAIR [Concomitant]
     Indication: ASTHMA
  4. CELEBREX [Concomitant]
     Indication: ARTHRITIS
  5. SINGULAIR [Concomitant]
     Indication: ASTHMA
  6. NASONEX [Concomitant]
     Indication: NASAL POLYPS
  7. ASTELIN [Concomitant]
     Indication: NASAL POLYPS
  8. ADVAIR [Concomitant]
     Indication: ASTHMA
  9. PREVASTATIN [Concomitant]
     Indication: BLOOD CHOLESTEROL INCREASED
  10. OMEPRAZOLE [Concomitant]
     Indication: GASTROINTESTINAL INFLAMMATION
  11. PREDNISONE [Concomitant]
     Indication: RHEUMATOID ARTHRITIS
     Dosage: TAPPERED OFF
  12. FOLIC ACID [Concomitant]
     Indication: PRODUCT USED FOR UNKNOWN INDICATION
  13. MULTIVITAMIN [Concomitant]
     Indication: PRODUCT USED FOR UNKNOWN INDICATION
  14. ZYRTEC [Concomitant]
     Indication: HYPERSENSITIVITY
  15. ZYRTEC [Concomitant]
     Indication: NASAL POLYPS
  16. TYLENOL ARTHRITIS [Concomitant]
     Indication: PRODUCT USED FOR UNKNOWN INDICATION

REACTIONS (4)
  - Hypersensitivity [Recovered/Resolved]
  - Rash pustular [Recovered/Resolved]
  - Abdominal pain [Recovered/Resolved]
  - Influenza like illness [Recovered/Resolved]
